FAERS Safety Report 18790768 (Version 1)
Quarter: 2021Q1

REPORT INFORMATION
  Report Type: Spontaneous
  Country: GB (occurrence: GB)
  Receive Date: 20210126
  Receipt Date: 20210126
  Transmission Date: 20210419
  Serious: Yes (Other)
  Sender: FDA-Public Use
  Company Number: GB-PERRIGO-21GB000788

PATIENT

DRUGS (7)
  1. ALENDRONIC ACID [Concomitant]
     Active Substance: ALENDRONIC ACID
     Dosage: 1 TABLET ONCE A WEEK
     Dates: start: 20201016
  2. IBUPROFEN. [Suspect]
     Active Substance: IBUPROFEN
     Indication: OSTEOPENIA
     Route: 048
  3. OMEPRAZOLE. [Concomitant]
     Active Substance: OMEPRAZOLE
     Dosage: 1 CAPSULE ONCE A DAY
     Dates: start: 20201016
  4. ZAPAIN [Concomitant]
     Active Substance: ACETAMINOPHEN\CODEINE PHOSPHATE
     Dosage: 1?2 TABLETS UP TO FOUR TIMES DAILY
     Dates: start: 20210113
  5. PREDNISOLONE. [Concomitant]
     Active Substance: PREDNISOLONE
     Dosage: TAKE ONE TABLET DAILY
     Dates: start: 20201202
  6. PREDNISOLONE. [Concomitant]
     Active Substance: PREDNISOLONE
     Dosage: TAKE ONE TABLET AND THEN TWO TABLETS IN THE MORNING ON ALTERNATE DAYS
     Dates: start: 20201020, end: 20201202
  7. PREDNISOLONE. [Concomitant]
     Active Substance: PREDNISOLONE
     Dosage: TAKE ONE TABLET AND THEN TWO TABLETS IN THE MORNING ON ALTERNATE TAKE ONE TABLET DAILY
     Dates: start: 20201202, end: 20201202

REACTIONS (1)
  - Angioedema [Recovered/Resolved]

NARRATIVE: CASE EVENT DATE: 20210112
